FAERS Safety Report 7006587-7 (Version None)
Quarter: 2010Q3

REPORT INFORMATION
  Report Type: 
  Country: None (occurrence: None)
  Receive Date: 20100921
  Receipt Date: 20100921
  Transmission Date: 20110219
  Serious: Yes (Hospitalization)
  Sender: FDA-Public Use
  Company Number: None

PATIENT
  Age: 28 Year
  Sex: Female
  Weight: 104 kg

DRUGS (1)
  1. VANCOMYCIN [Suspect]
     Indication: ANTIBIOTIC PROPHYLAXIS
     Dosage: 1 GM PRE-OP INJ
     Dates: start: 20100614, end: 20100614

REACTIONS (2)
  - BLOOD PRESSURE SYSTOLIC DECREASED [None]
  - RASH ERYTHEMATOUS [None]
